FAERS Safety Report 8518435-4 (Version None)
Quarter: 2012Q3

REPORT INFORMATION
  Report Type: 
  Country: None (occurrence: None)
  Receive Date: 20120718
  Receipt Date: 20120302
  Transmission Date: 20120928
  Serious: No
  Sender: FDA-Public Use
  Company Number: US-BRISTOL-MYERS SQUIBB COMPANY-16429599

PATIENT
  Age: 85 Year
  Sex: Female

DRUGS (6)
  1. SYNTHROID [Concomitant]
  2. XALATAN [Concomitant]
  3. COUMADIN [Suspect]
     Dosage: DURATION:4 OR 5 YRS
     Dates: end: 20110201
  4. TOPROL-XL [Concomitant]
  5. MICARDIS [Concomitant]
  6. LIPITOR [Concomitant]

REACTIONS (2)
  - DIZZINESS [None]
  - WEIGHT DECREASED [None]
